FAERS Safety Report 9537243 (Version 1)
Quarter: 2013Q3

REPORT INFORMATION
  Report Type: Spontaneous
  Country: US (occurrence: US)
  Receive Date: 20130919
  Receipt Date: 20130919
  Transmission Date: 20140515
  Serious: No
  Sender: FDA-Public Use
  Company Number: US-PURDUE-USA-2013-0098882

PATIENT
  Age: 55 Year
  Sex: Male

DRUGS (2)
  1. INTERMEZZO [Suspect]
     Indication: PRODUCT USED FOR UNKNOWN INDICATION
     Dosage: 3.5 MG, UNK
     Route: 060
  2. INTERMEZZO [Suspect]
     Dosage: 1.75 MG, HS

REACTIONS (3)
  - Drug effect increased [Unknown]
  - Fatigue [Unknown]
  - Somnolence [Unknown]
